FAERS Safety Report 7433016-1 (Version None)
Quarter: 2011Q2

REPORT INFORMATION
  Report Type: 
  Country: None (occurrence: None)
  Receive Date: 20110422
  Receipt Date: 20110412
  Transmission Date: 20111010
  Serious: No
  Sender: FDA-Public Use
  Company Number: US-CEPHALON-2011001796

PATIENT
  Sex: Female
  Weight: 52 kg

DRUGS (1)
  1. FENTORA [Suspect]
     Indication: CANCER PAIN
     Route: 002
     Dates: start: 20110410

REACTIONS (4)
  - DRUG PRESCRIBING ERROR [None]
  - DEPRESSED LEVEL OF CONSCIOUSNESS [None]
  - DRUG INEFFECTIVE [None]
  - POOR QUALITY DRUG ADMINISTERED [None]
